FAERS Safety Report 21684409 (Version 10)
Quarter: 2023Q4

REPORT INFORMATION
  Report Type: Spontaneous
  Country: US (occurrence: US)
  Receive Date: 20221205
  Receipt Date: 20231026
  Transmission Date: 20240109
  Serious: Yes (Death, Hospitalization, Other)
  Sender: FDA-Public Use
  Company Number: US-PFIZER INC-PV202200117482

PATIENT
  Age: 56 Year
  Sex: Female
  Weight: 157.37 kg

DRUGS (2)
  1. IBRANCE [Suspect]
     Active Substance: PALBOCICLIB
     Indication: Breast cancer stage IV
     Dosage: 125 MG, 1X/DAY
     Dates: start: 20221003
  2. LETROZOLE [Concomitant]
     Active Substance: LETROZOLE
     Dosage: UNK
     Dates: start: 20221003

REACTIONS (7)
  - Neoplasm progression [Fatal]
  - Thrombosis [Fatal]
  - Necrotising fasciitis [Fatal]
  - Pleural effusion [Unknown]
  - Deafness [Not Recovered/Not Resolved]
  - Blood potassium increased [Unknown]
  - Amino acid level increased [Unknown]

NARRATIVE: CASE EVENT DATE: 20221209
